FAERS Safety Report 5037983-5 (Version None)
Quarter: 2006Q2

REPORT INFORMATION
  Report Type: 
  Country: None (occurrence: None)
  Receive Date: 20060601
  Receipt Date: 20060201
  Transmission Date: 20061013
  Serious: No
  Sender: FDA-Public Use
  Company Number: 2006PV008000

PATIENT
  Age: 66 Year
  Sex: Female
  Weight: 113.8529 kg

DRUGS (6)
  1. BYETTA [Suspect]
     Indication: DIABETES MELLITUS NON-INSULIN-DEPENDENT
     Dosage: SEE IMAGE
     Route: 058
     Dates: start: 20051201, end: 20060116
  2. BYETTA [Suspect]
     Indication: DIABETES MELLITUS NON-INSULIN-DEPENDENT
     Dosage: SEE IMAGE
     Route: 058
     Dates: start: 20060119
  3. METFORMIN [Concomitant]
  4. PRANDIN [Concomitant]
  5. ACTOPLUS MET [Concomitant]
  6. METFORMIN [Concomitant]

REACTIONS (9)
  - ABDOMINAL PAIN [None]
  - DIARRHOEA [None]
  - EMOTIONAL DISTRESS [None]
  - FOOD CRAVING [None]
  - INCREASED APPETITE [None]
  - INSOMNIA [None]
  - NAUSEA [None]
  - STRESS [None]
  - VAGINAL DISCHARGE [None]
